FAERS Safety Report 8843529 (Version 1)
Quarter: 2012Q4

REPORT INFORMATION
  Report Type: 
  Country: US (occurrence: US)
  Receive Date: 20121016
  Receipt Date: 20121016
  Transmission Date: 20130627
  Serious: Yes (Disabling, Other)
  Sender: FDA-Public Use
  Company Number: US-TEVA-363830USA

PATIENT
  Sex: Female

DRUGS (1)
  1. PROPOXYPHENE NAPSYLATE AND ACETAMINOPHEN [Suspect]
     Indication: PAIN
     Dates: start: 20020223, end: 20100927

REACTIONS (4)
  - Atrial tachycardia [Unknown]
  - Cardiac disorder [Unknown]
  - Palpitations [Unknown]
  - Arrhythmia [Unknown]
